FAERS Safety Report 12839071 (Version 1)
Quarter: 2016Q4

REPORT INFORMATION
  Report Type: Spontaneous
  Country: US (occurrence: US)
  Receive Date: 20161010
  Receipt Date: 20161010
  Transmission Date: 20170207
  Serious: No
  Sender: FDA-Public Use
  Company Number: None

PATIENT
  Age: 13 Year
  Sex: Male
  Weight: 84.6 kg

DRUGS (3)
  1. CHILDREN^S MULTI-VITAMIN [Concomitant]
  2. ZOLOFT [Concomitant]
     Active Substance: SERTRALINE HYDROCHLORIDE
  3. HYOSCYAMINE. [Suspect]
     Active Substance: HYOSCYAMINE
     Indication: ABDOMINAL PAIN UPPER
     Dosage: ?          QUANTITY:30 TABLET(S);?
     Route: 060

REACTIONS (9)
  - Protein urine present [None]
  - Heart rate increased [None]
  - Crying [None]
  - Heart rate irregular [None]
  - Abdominal pain upper [None]
  - Testicular pain [None]
  - Cystitis [None]
  - Chest pain [None]
  - Blood urine present [None]

NARRATIVE: CASE EVENT DATE: 20160907
